FAERS Safety Report 20631453 (Version 1)
Quarter: 2022Q1

REPORT INFORMATION
  Report Type: Spontaneous
  Country: US (occurrence: US)
  Receive Date: 20220324
  Receipt Date: 20220324
  Transmission Date: 20220423
  Serious: Yes (Other)
  Sender: FDA-Public Use
  Company Number: US-CURRAX PHARMACEUTICALS LLC-US-2022CUR021050

PATIENT
  Age: 67 Year
  Sex: Female

DRUGS (2)
  1. CONTRAVE [Suspect]
     Active Substance: BUPROPION HYDROCHLORIDE\NALTREXONE HYDROCHLORIDE
     Indication: Weight control
     Dosage: TWO PILLS IN THE MORNING AND TWO PILLS AT NIGHT
     Route: 048
     Dates: start: 202203
  2. WELLBUTRIN [Concomitant]
     Active Substance: BUPROPION HYDROCHLORIDE
     Indication: Product used for unknown indication
     Dosage: 300 MG WITH MEAL

REACTIONS (9)
  - Mental impairment [Not Recovered/Not Resolved]
  - Apathy [Not Recovered/Not Resolved]
  - Memory impairment [Not Recovered/Not Resolved]
  - Fatigue [Not Recovered/Not Resolved]
  - Asthenia [Not Recovered/Not Resolved]
  - Contraindicated product administered [Unknown]
  - Product prescribing error [Unknown]
  - Drug titration error [Unknown]
  - Patient dissatisfaction with treatment [Unknown]

NARRATIVE: CASE EVENT DATE: 20220301
